FAERS Safety Report 13631090 (Version 1)
Quarter: 2017Q2

REPORT INFORMATION
  Report Type: Spontaneous
  Country: CO (occurrence: CO)
  Receive Date: 20170608
  Receipt Date: 20170608
  Transmission Date: 20170830
  Serious: Yes (Disabling)
  Sender: FDA-Public Use
  Company Number: CO-HIKMA PHARMACEUTICALS CO. LTD-2017CO006991

PATIENT

DRUGS (4)
  1. REMSIMA [Suspect]
     Active Substance: INFLIXIMAB
     Indication: SPONDYLOARTHROPATHY
     Dosage: 300 MG, 6 WEEKS
     Route: 042
     Dates: start: 20170427, end: 20170427
  2. PYRIDOXIN [Concomitant]
     Active Substance: PYRIDOXINE
     Dosage: 50 MG, EVERY 24 HOURS
  3. ISONIAZIDE [Concomitant]
     Active Substance: ISONIAZID
     Dosage: 300 MG, EVERY 24 HOURS
  4. REMSIMA [Suspect]
     Active Substance: INFLIXIMAB
     Indication: COLITIS
     Dosage: 300 MG, 6 WEEKS
     Route: 042
     Dates: start: 20160414, end: 20160414

REACTIONS (2)
  - Inappropriate schedule of drug administration [Unknown]
  - Lung disorder [Not Recovered/Not Resolved]

NARRATIVE: CASE EVENT DATE: 201704
